FAERS Safety Report 8888102 (Version 1)
Quarter: 2012Q4

REPORT INFORMATION
  Report Type: 
  Country: JP (occurrence: JP)
  Receive Date: 20121106
  Receipt Date: 20121106
  Transmission Date: 20130627
  Serious: Yes (Other)
  Sender: FDA-Public Use
  Company Number: JP-MERCK-1211JPN000656

PATIENT
  Age: 50 Year
  Sex: Female

DRUGS (2)
  1. GASTER [Suspect]
     Dosage: 40 mg, qd, tablet
     Route: 048
  2. [THERAPY UNSPECIFIED] [Concomitant]

REACTIONS (1)
  - Glaucoma [Unknown]
